FAERS Safety Report 8370951-4 (Version None)
Quarter: 2012Q2

REPORT INFORMATION
  Report Type: 
  Country: None (occurrence: None)
  Receive Date: 20120518
  Receipt Date: 20120515
  Transmission Date: 20120825
  Serious: Yes (Hospitalization, Other)
  Sender: FDA-Public Use
  Company Number: BR-PFIZER INC-2012118843

PATIENT
  Age: 45 Year
  Sex: Female
  Weight: 54 kg

DRUGS (10)
  1. ENALAPRIL [Concomitant]
     Indication: HYPERTENSION
     Dosage: UNK
     Dates: start: 20090101
  2. MUSCULARE [Concomitant]
     Indication: INTERVERTEBRAL DISC PROTRUSION
     Dosage: UNK
  3. COMBIRON B 12 [Concomitant]
     Indication: BONE DISORDER
     Dosage: UNK
     Dates: start: 20100101, end: 20120425
  4. CLONAZEPAM [Concomitant]
     Indication: SLEEP DISORDER
  5. CODEX [Concomitant]
     Indication: PAIN
  6. OXYCONTIN [Concomitant]
     Indication: INTERVERTEBRAL DISC PROTRUSION
  7. LYRICA [Suspect]
     Indication: FIBROMYALGIA
     Dosage: 150 MG, 2X/DAY
     Route: 048
     Dates: end: 20120512
  8. TRAMADOL HYDROCHLORIDE [Concomitant]
     Indication: INTERVERTEBRAL DISC PROTRUSION
  9. CLONAZEPAM [Concomitant]
     Indication: PAIN
  10. CYMBALTA [Concomitant]
     Indication: DEPRESSION

REACTIONS (15)
  - BEDRIDDEN [None]
  - BACK DISORDER [None]
  - PAIN IN EXTREMITY [None]
  - NECK PAIN [None]
  - ABDOMINAL HERNIA [None]
  - GASTRIC DISORDER [None]
  - ANAEMIA [None]
  - PAIN [None]
  - FIBROMYALGIA [None]
  - ARTHRALGIA [None]
  - MYALGIA [None]
  - ANXIETY [None]
  - PHOBIA [None]
  - UMBILICAL HERNIA [None]
  - SPINAL PAIN [None]
